FAERS Safety Report 8849339 (Version 3)
Quarter: 2013Q4

REPORT INFORMATION
  Report Type: Spontaneous
  Country: US (occurrence: None)
  Receive Date: 20120426
  Receipt Date: 20131226
  Transmission Date: 20140711
  Serious: Yes (Other)
  Sender: FDA-Public Use
  Company Number: PHEH2012US002231

PATIENT
  Age: 53 Year
  Sex: Female
  Weight: 113.4 kg

DRUGS (7)
  1. GILENYA [Suspect]
     Indication: MULTIPLE SCLEROSIS
     Dosage: OT
     Route: 048
     Dates: start: 20121109, end: 20121218
  2. TYSABRI [Suspect]
     Dosage: OT
  3. NEURONTIN (GABAPENTIN) [Concomitant]
  4. PROZAC (FLUOXETINE HYDROCHLORIDE) [Concomitant]
  5. NUVIGIL (ARMODAFINIL) [Concomitant]
  6. VITAMIN B 12 (VITAMIN B NOS) [Concomitant]
  7. VITAMIN D (ERGOCALCIFEROL) [Concomitant]

REACTIONS (19)
  - Coordination abnormal [None]
  - Muscle spasticity [None]
  - Pain [None]
  - Gait disturbance [None]
  - Fatigue [None]
  - Asthenia [None]
  - Cystitis [None]
  - Balance disorder [None]
  - Musculoskeletal disorder [None]
  - Nausea [None]
  - Dyspnoea [None]
  - Oral infection [None]
  - Cough [None]
  - Disturbance in attention [None]
  - Visual impairment [None]
  - Malaise [None]
  - Headache [None]
  - Nasopharyngitis [None]
  - Vision blurred [None]
